FAERS Safety Report 5037499-6 (Version None)
Quarter: 2006Q2

REPORT INFORMATION
  Report Type: 
  Country: None (occurrence: None)
  Receive Date: 20060609
  Receipt Date: 20060208
  Transmission Date: 20061013
  Serious: Yes (Life-Threatening, Hospitalization)
  Sender: FDA-Public Use
  Company Number: 033

PATIENT
  Sex: Male
  Weight: 80.7403 kg

DRUGS (4)
  1. FAZACLO ODT [Suspect]
     Indication: SCHIZOPHRENIA
     Dosage: 600 MG PO DAILY
     Route: 048
     Dates: start: 20051103
  2. ZOLOFT [Concomitant]
  3. PROTONIX [Concomitant]
  4. ACETAMINOPHEN [Concomitant]

REACTIONS (1)
  - PULMONARY EMBOLISM [None]
